FAERS Safety Report 25003242 (Version 4)
Quarter: 2025Q1

REPORT INFORMATION
  Report Type: Report from Study
  Country: MX (occurrence: MX)
  Receive Date: 20250224
  Receipt Date: 20250321
  Transmission Date: 20250408
  Serious: Yes (Other)
  Sender: ROCHE
  Company Number: MX-002147023-NVSC2025MX028872

PATIENT
  Age: 5 Year
  Sex: Male
  Weight: 19.6 kg

DRUGS (14)
  1. XOLAIR [Suspect]
     Active Substance: OMALIZUMAB
     Indication: Asthma
     Dosage: 1 DOSAGE FORM (150 MG), QMO
     Route: 058
     Dates: start: 20241126
  2. XOLAIR [Suspect]
     Active Substance: OMALIZUMAB
     Route: 058
     Dates: start: 20250125
  3. XOLAIR [Suspect]
     Active Substance: OMALIZUMAB
     Dosage: 150 MG
     Route: 058
     Dates: start: 20241225
  4. XOLAIR [Suspect]
     Active Substance: OMALIZUMAB
     Route: 058
  5. XOLAIR [Suspect]
     Active Substance: OMALIZUMAB
     Route: 058
  6. SERETIDE [Concomitant]
     Active Substance: FLUTICASONE PROPIONATE\SALMETEROL XINAFOATE
     Indication: Asthma
     Dosage: UNK, Q12H (1 SHOT OF 50/100 MCG)
     Route: 055
     Dates: start: 201911
  7. SPIRIVA RESPIMAT [Concomitant]
     Active Substance: TIOTROPIUM BROMIDE
     Indication: Asthma
     Dosage: UNK, Q24H (1 SHOT)
     Route: 055
     Dates: start: 2023
  8. LEVOCETIRIZINE [Concomitant]
     Active Substance: LEVOCETIRIZINE
     Indication: Asthma
     Dosage: 5 ML, Q12H
     Route: 048
     Dates: start: 2023
  9. BILASTINE [Concomitant]
     Active Substance: BILASTINE
     Indication: Asthma
     Dosage: 3 ML, Q12H
     Route: 048
     Dates: start: 2023
  10. DYMISTA [Concomitant]
     Active Substance: AZELASTINE HYDROCHLORIDE\FLUTICASONE PROPIONATE
     Indication: Asthma
     Dosage: UNK, Q12H (1 SHOT, IN EACH NOSTRIL EVERY 12 HOURS)
     Route: 045
     Dates: start: 2023
  11. VENTOLIN [Concomitant]
     Active Substance: ALBUTEROL SULFATE
     Indication: Asthma
     Dosage: UNK, Q3H (2 SHOTS, EVERY 3 HOURS IN CASE WHEN NEEDED)
     Dates: start: 201911
  12. OMEGA 3 [Concomitant]
     Active Substance: CAPSAICIN
     Dosage: 2 DOSAGE FORM (2 GUMMIES), QD
     Dates: start: 202308
  13. VITAMIN C [Concomitant]
     Active Substance: ASCORBIC ACID
     Indication: Hypovitaminosis
     Dosage: 2 DOSAGE FORM (2 GUMMIES), QD
     Route: 048
     Dates: start: 202308
  14. VITAMIN B COMPLEX [Concomitant]
     Active Substance: CYANOCOBALAMIN\DEXPANTHENOL\NIACINAMIDE\PYRIDOXINE HYDROCHLORIDE\RIBOFLAVIN 5^-PHOSPHATE SODIUM\THIA
     Indication: Hypovitaminosis
     Dosage: 2 DOSAGE FORM (2 GUMMIES), QD
     Route: 048

REACTIONS (11)
  - Dyspnoea [Recovered/Resolved]
  - Body temperature increased [Unknown]
  - Productive cough [Recovered/Resolved]
  - Ear inflammation [Recovered/Resolved]
  - Off label use [Unknown]
  - Rhinorrhoea [Not Recovered/Not Resolved]
  - Asthmatic crisis [Recovered/Resolved]
  - Cough [Recovered/Resolved]
  - Ear pain [Recovered/Resolved]
  - Rash [Recovered/Resolved]
  - Immune system disorder [Unknown]

NARRATIVE: CASE EVENT DATE: 20241130
